FAERS Safety Report 19024426 (Version 2)
Quarter: 2021Q1

REPORT INFORMATION
  Report Type: Report from Study
  Country: None (occurrence: ES)
  Receive Date: 20210317
  Receipt Date: 20210323
  Transmission Date: 20210420
  Serious: Yes (Other)
  Sender: FDA-Public Use
  Company Number: ES-ABBVIE-21K-144-3743980-00

PATIENT
  Age: 72 Year
  Sex: Female

DRUGS (2)
  1. DUODOPA [Suspect]
     Active Substance: CARBIDOPA\LEVODOPA
     Dosage: DOSE ADJUSTED
     Route: 050
     Dates: start: 202103
  2. DUODOPA [Suspect]
     Active Substance: CARBIDOPA\LEVODOPA
     Indication: PARKINSON^S DISEASE
     Route: 050
     Dates: start: 20200218, end: 202103

REACTIONS (10)
  - Gastritis [Recovering/Resolving]
  - Device deployment issue [Not Recovered/Not Resolved]
  - Duodenal ulcer [Recovered/Resolved]
  - Flatulence [Unknown]
  - Stoma site pain [Not Recovered/Not Resolved]
  - Complication associated with device [Unknown]
  - Abdominal pain [Recovered/Resolved]
  - Off label use [Unknown]
  - Abdominal pain upper [Recovering/Resolving]
  - Vomiting [Recovered/Resolved]

NARRATIVE: CASE EVENT DATE: 2021
